FAERS Safety Report 4331482-1 (Version None)
Quarter: 2004Q2

REPORT INFORMATION
  Report Type: 
  Country: None (occurrence: None)
  Receive Date: 20040401
  Receipt Date: 20040401
  Transmission Date: 20050107
  Serious: Yes (Life-Threatening, Hospitalization)
  Sender: FDA-Public Use
  Company Number: None

PATIENT
  Sex: Female
  Weight: 63.5036 kg

DRUGS (1)
  1. LEVAQUIN [Suspect]
     Indication: CELLULITIS
     Dosage: 500 MG DAILY ORAL
     Route: 048
     Dates: start: 20040326, end: 20040328

REACTIONS (2)
  - BLOOD GLUCOSE DECREASED [None]
  - DRUG INEFFECTIVE [None]
